FAERS Safety Report 9006216 (Version 1)
Quarter: 2013Q1

REPORT INFORMATION
  Report Type: Spontaneous
  Country: US (occurrence: US)
  Receive Date: 20130110
  Receipt Date: 20130110
  Transmission Date: 20140127
  Serious: Yes (Other)
  Sender: FDA-Public Use
  Company Number: US-009507513-0901USA02266

PATIENT
  Sex: Male
  Weight: 19.7 kg

DRUGS (3)
  1. SINGULAIR [Suspect]
     Indication: BRONCHIAL HYPERREACTIVITY
     Dosage: 5 MG, QD
     Route: 048
     Dates: start: 20071120, end: 20080715
  2. FLOVENT HFA [Concomitant]
     Dosage: UNK
     Dates: start: 20070315
  3. PROAIR HFA [Concomitant]
     Dosage: UNK
     Dates: start: 20071120

REACTIONS (4)
  - Abnormal behaviour [Unknown]
  - Suicidal ideation [Unknown]
  - Aggression [Unknown]
  - Depression [Unknown]
